FAERS Safety Report 9065366 (Version 1)
Quarter: 2013Q1

REPORT INFORMATION
  Report Type: Spontaneous
  Country: US (occurrence: US)
  Receive Date: 20130214
  Receipt Date: 20130214
  Transmission Date: 20140127
  Serious: Yes (Other)
  Sender: FDA-Public Use
  Company Number: US-JNJFOC-20130105680

PATIENT
  Age: 40 None
  Sex: Female
  Weight: 88 kg

DRUGS (8)
  1. REMICADE [Suspect]
     Indication: ANKYLOSING SPONDYLITIS
     Route: 042
     Dates: start: 20121220
  2. REMICADE [Suspect]
     Indication: ANKYLOSING SPONDYLITIS
     Dosage: SECOND INFUSION
     Route: 042
     Dates: start: 20130114, end: 20130114
  3. APAP [Concomitant]
     Indication: PREMEDICATION
     Route: 048
     Dates: start: 20121220
  4. APAP [Concomitant]
     Indication: PREMEDICATION
     Route: 048
     Dates: start: 20130114
  5. LORATADINE [Concomitant]
     Indication: PREMEDICATION
     Route: 065
     Dates: start: 20121220
  6. LORATADINE [Concomitant]
     Indication: PREMEDICATION
     Route: 065
     Dates: start: 20130114
  7. FLUOXETINE [Concomitant]
     Route: 065
  8. ABILIFY [Concomitant]
     Route: 065

REACTIONS (11)
  - Infusion related reaction [Recovered/Resolved]
  - Pyrexia [Recovered/Resolved]
  - Back pain [Recovered/Resolved]
  - Chest discomfort [Recovered/Resolved]
  - Chills [Recovered/Resolved]
  - Heart rate increased [Recovered/Resolved]
  - Myalgia [Recovered/Resolved]
  - Flank pain [Recovered/Resolved]
  - Arthralgia [Recovered/Resolved]
  - Pain in extremity [Recovered/Resolved]
  - Oxygen saturation decreased [Recovered/Resolved]
